FAERS Safety Report 9555783 (Version 1)
Quarter: 2013Q3

REPORT INFORMATION
  Report Type: Spontaneous
  Country: DE (occurrence: DE)
  Receive Date: 20130926
  Receipt Date: 20130926
  Transmission Date: 20140515
  Serious: Yes (Other)
  Sender: FDA-Public Use
  Company Number: DE-JNJFOC-20130907031

PATIENT
  Age: 55 Year
  Sex: Female

DRUGS (2)
  1. REGAINE FRAUEN 2% [Suspect]
     Route: 061
  2. REGAINE FRAUEN 2% [Suspect]
     Indication: PRODUCT USED FOR UNKNOWN INDICATION
     Route: 061
     Dates: start: 2011

REACTIONS (5)
  - Herpes zoster [Recovered/Resolved]
  - Incorrect dose administered [Not Recovered/Not Resolved]
  - Alopecia [Not Recovered/Not Resolved]
  - Dry skin [Recovered/Resolved]
  - Pruritus [Recovered/Resolved]
